FAERS Safety Report 9508200 (Version 2)
Quarter: 2013Q4

REPORT INFORMATION
  Report Type: Spontaneous
  Country: US (occurrence: US)
  Receive Date: 20130909
  Receipt Date: 20131115
  Transmission Date: 20140711
  Serious: No
  Sender: FDA-Public Use
  Company Number: US-PFIZER INC-2013255619

PATIENT
  Age: 70 Year
  Sex: Female

DRUGS (1)
  1. IBUPROFEN [Suspect]
     Indication: BACK PAIN
     Dosage: UNK, AS DIRECTED
     Route: 048

REACTIONS (3)
  - Swelling [Recovered/Resolved]
  - Vomiting [Recovered/Resolved]
  - Micturition disorder [Recovered/Resolved]
